FAERS Safety Report 5651624-5 (Version None)
Quarter: 2008Q1

REPORT INFORMATION
  Report Type: 
  Country: None (occurrence: None)
  Receive Date: 20080305
  Receipt Date: 20080303
  Transmission Date: 20080703
  Serious: Yes (Death)
  Sender: FDA-Public Use
  Company Number: FR-AVENTIS-200810733FR

PATIENT
  Age: 54 Year
  Sex: Male

DRUGS (3)
  1. TAXOTERE [Suspect]
     Indication: OESOPHAGEAL ADENOCARCINOMA RECURRENT
     Route: 042
     Dates: start: 20071008, end: 20071008
  2. CISPLATIN [Suspect]
     Indication: OESOPHAGEAL ADENOCARCINOMA RECURRENT
     Route: 042
     Dates: start: 20071008, end: 20071008
  3. FLUOROURACIL [Suspect]
     Indication: OESOPHAGEAL ADENOCARCINOMA RECURRENT
     Route: 042
     Dates: start: 20071008, end: 20071008

REACTIONS (4)
  - CYTOLYTIC HEPATITIS [None]
  - LACTIC ACIDOSIS [None]
  - RENAL FAILURE ACUTE [None]
  - VENTRICULAR EXTRASYSTOLES [None]
